FAERS Safety Report 4544683-4 (Version None)
Quarter: 2005Q1

REPORT INFORMATION
  Report Type: 
  Country: None (occurrence: None)
  Receive Date: 20050105
  Receipt Date: 20041229
  Transmission Date: 20050727
  Serious: Yes (Hospitalization)
  Sender: FDA-Public Use
  Company Number: DE-ABBOTT-05P-062-0285101-00

PATIENT
  Sex: Female

DRUGS (3)
  1. AKINETON [Suspect]
     Indication: SUICIDE ATTEMPT
     Route: 048
     Dates: start: 20041227, end: 20041227
  2. AMISULPRIDE [Suspect]
     Indication: SUICIDE ATTEMPT
     Route: 048
     Dates: start: 20041227, end: 20041227
  3. CLOMIPRAMINE HCL [Suspect]
     Indication: SUICIDE ATTEMPT
     Route: 048
     Dates: start: 20041227, end: 20041227

REACTIONS (10)
  - ASPIRATION [None]
  - ELECTROCARDIOGRAM QT PROLONGED [None]
  - INTENTIONAL MISUSE [None]
  - MYDRIASIS [None]
  - RESPIRATORY ACIDOSIS [None]
  - RESPIRATORY DEPRESSION [None]
  - SOMNOLENCE [None]
  - SOPOR [None]
  - SUICIDE ATTEMPT [None]
  - TACHYCARDIA [None]
